FAERS Safety Report 22005782 (Version 5)
Quarter: 2023Q1

REPORT INFORMATION
  Report Type: Report from Study
  Country: PL (occurrence: PL)
  Receive Date: 20230217
  Receipt Date: 20230328
  Transmission Date: 20230418
  Serious: Yes (Hospitalization)
  Sender: FDA-Public Use
  Company Number: PL-PFIZER INC-PV202300027425

PATIENT
  Age: 66 Year
  Sex: Female
  Weight: 54 kg

DRUGS (6)
  1. ENCORAFENIB [Suspect]
     Active Substance: ENCORAFENIB
     Indication: Colorectal cancer metastatic
     Dosage: 300 MG, DAILY
     Route: 048
     Dates: start: 20221024, end: 20230207
  2. CETUXIMAB [Suspect]
     Active Substance: CETUXIMAB
     Dosage: UNK
     Dates: end: 20221128
  3. LEUCOVORIN [Suspect]
     Active Substance: LEUCOVORIN
     Indication: Colorectal cancer metastatic
     Dosage: 400 ML, EVERY 2 WEEKS
     Route: 042
     Dates: start: 20221024, end: 20230207
  4. OXALIPLATIN [Suspect]
     Active Substance: OXALIPLATIN
     Indication: Colorectal cancer metastatic
     Dosage: 85 ML, EVERY 2 WEEKS
     Route: 042
     Dates: start: 20221024, end: 20230207
  5. FLUOROURACIL [Suspect]
     Active Substance: FLUOROURACIL
     Indication: Colorectal cancer metastatic
     Dosage: 2400 ML, EVERY 2 WEEKS
     Route: 042
     Dates: start: 20221024, end: 20230207
  6. FLUOROURACIL [Suspect]
     Active Substance: FLUOROURACIL
     Dosage: 400 ML, EVERY 2 WEEKS
     Route: 040
     Dates: start: 20221024, end: 20230207

REACTIONS (1)
  - Anaemia [Recovered/Resolved]

NARRATIVE: CASE EVENT DATE: 20230207
